FAERS Safety Report 4322266-9 (Version None)
Quarter: 2004Q1

REPORT INFORMATION
  Report Type: 
  Country: None (occurrence: None)
  Receive Date: 20040319
  Receipt Date: 20040303
  Transmission Date: 20041129
  Serious: Yes (Hospitalization)
  Sender: FDA-Public Use
  Company Number: F01200400260

PATIENT
  Age: 69 Year
  Sex: Male

DRUGS (7)
  1. (OXALIPLATIN) - SOLUTION - 299 MG [Suspect]
     Indication: COLON CANCER
     Dosage: 299 MG Q3W INTRAVENOUS NOS
     Route: 042
     Dates: start: 20040123, end: 20040123
  2. (CAPECITABINE) - TABLET - 2300 MG [Suspect]
     Dosage: 2300 MG TWICE A DAY PER ORAL FROM D1 TO D15 ORAL
     Route: 048
     Dates: start: 20040123
  3. ALLOPURINOL [Concomitant]
  4. VERAPAMIL [Concomitant]
  5. CELEXA [Concomitant]
  6. BENADRYL [Concomitant]
  7. COMPAZINE [Concomitant]

REACTIONS (5)
  - ACUTE MYOCARDIAL INFARCTION [None]
  - DEHYDRATION [None]
  - DIARRHOEA [None]
  - NAUSEA [None]
  - VOMITING [None]
